FAERS Safety Report 21206413 (Version 2)
Quarter: 2022Q3

REPORT INFORMATION
  Report Type: Spontaneous
  Country: US (occurrence: None)
  Receive Date: 20220812
  Receipt Date: 20220923
  Transmission Date: 20221027
  Serious: No
  Sender: FDA-Public Use
  Company Number: 2022A275939

PATIENT
  Sex: Male
  Weight: 72.6 kg

DRUGS (1)
  1. IMFINZI [Suspect]
     Active Substance: DURVALUMAB
     Indication: Non-small cell lung cancer stage IIIB
     Dosage: MONTHLY, PATIENT HAS HAS HAD 6 INFUSIONS SO FAR
     Route: 042

REACTIONS (6)
  - Musculoskeletal pain [Unknown]
  - Fatigue [Unknown]
  - Back pain [Unknown]
  - Breakthrough pain [Unknown]
  - Hypersomnia [Unknown]
  - Decreased appetite [Unknown]
